FAERS Safety Report 8270196-2 (Version None)
Quarter: 2012Q2

REPORT INFORMATION
  Report Type: 
  Country: None (occurrence: None)
  Receive Date: 20120410
  Receipt Date: 20120402
  Transmission Date: 20120825
  Serious: Yes (Hospitalization)
  Sender: FDA-Public Use
  Company Number: FR-B.I. PHARMACEUTICALS,INC./RIDGEFIELD-2012-FF-00402FF

PATIENT
  Sex: Male
  Weight: 73 kg

DRUGS (4)
  1. PRADAXA [Suspect]
     Indication: THROMBOSIS PROPHYLAXIS
     Dosage: 220 MG
     Route: 048
     Dates: start: 20111103, end: 20111108
  2. ACETAMINOPHEN [Concomitant]
     Dosage: 4000 MG
     Route: 048
     Dates: start: 20111108
  3. KETOPROFEN [Concomitant]
     Dosage: 200 MG
     Route: 048
     Dates: start: 20111104, end: 20111118
  4. MORPHINE SULFATE [Concomitant]
     Dosage: 20 MG
     Route: 048
     Dates: start: 20111108, end: 20111123

REACTIONS (2)
  - DRUG INEFFECTIVE [None]
  - VENOUS THROMBOSIS [None]
